FAERS Safety Report 4553824-4 (Version None)
Quarter: 2005Q1

REPORT INFORMATION
  Report Type: 
  Country: None (occurrence: None)
  Receive Date: 20050114
  Receipt Date: 20050114
  Transmission Date: 20050727
  Serious: No
  Sender: FDA-Public Use
  Company Number: None

PATIENT
  Age: 54 Year
  Sex: Male

DRUGS (1)
  1. ACCUPRIL [Suspect]
     Indication: HYPERTENSION
     Dosage: ONE DAILY   BY MOUTH
     Route: 048
     Dates: start: 20040320, end: 20041204

REACTIONS (1)
  - ANGIONEUROTIC OEDEMA [None]
